FAERS Safety Report 18893597 (Version 3)
Quarter: 2022Q2

REPORT INFORMATION
  Report Type: Spontaneous
  Country: US (occurrence: US)
  Receive Date: 20210215
  Receipt Date: 20220513
  Transmission Date: 20220720
  Serious: Yes (Disabling)
  Sender: FDA-Public Use
  Company Number: US-SANOFI-00459027

PATIENT
  Age: 90 Year
  Sex: Female

DRUGS (1)
  1. LANTUS [Suspect]
     Active Substance: INSULIN GLARGINE
     Indication: Type 1 diabetes mellitus
     Dosage: 16 IU, Q12H
     Route: 065

REACTIONS (2)
  - Visual impairment [Unknown]
  - Inappropriate schedule of product administration [Unknown]
